FAERS Safety Report 5203642-9 (Version None)
Quarter: 2007Q1

REPORT INFORMATION
  Report Type: 
  Country: None (occurrence: None)
  Receive Date: 20070110
  Receipt Date: 20070102
  Transmission Date: 20070707
  Serious: Yes (Other)
  Sender: FDA-Public Use
  Company Number: US-JNJFOC-20061201030

PATIENT
  Sex: Female
  Weight: 52.16 kg

DRUGS (9)
  1. EXTRA STRENGTH TYLENOL [Suspect]
  2. EXTRA STRENGTH TYLENOL [Suspect]
     Indication: PAIN
  3. TRAMADOL HCL [Concomitant]
  4. MORPHINE [Concomitant]
     Indication: PAIN
  5. OXYCODONE HCL [Concomitant]
     Indication: PAIN
  6. SYNTHROID [Concomitant]
     Indication: HYPOTHYROIDISM
  7. TRAZODONE HCL [Concomitant]
     Indication: DEPRESSION
  8. CLONAZEPAM [Concomitant]
     Indication: ANXIETY
  9. VITAMIN CAP [Concomitant]
     Indication: ROUTINE HEALTH MAINTENANCE

REACTIONS (3)
  - ABDOMINAL PAIN [None]
  - DIARRHOEA [None]
  - RECTAL HAEMORRHAGE [None]
